FAERS Safety Report 6109634-X (Version None)
Quarter: 2009Q1

REPORT INFORMATION
  Report Type: 
  Country: None (occurrence: None)
  Receive Date: 20090310
  Receipt Date: 20080319
  Transmission Date: 20090719
  Serious: No
  Sender: FDA-Public Use
  Company Number: A0702068A

PATIENT
  Age: 62 Year
  Sex: Female

DRUGS (1)
  1. NICORETTE [Suspect]
     Dates: start: 20070105, end: 20070106

REACTIONS (7)
  - CAUSTIC INJURY [None]
  - DYSKINESIA [None]
  - EATING DISORDER [None]
  - INTENTIONAL DRUG MISUSE [None]
  - OEDEMA MOUTH [None]
  - ORAL PAIN [None]
  - OROPHARYNGEAL BLISTERING [None]
